FAERS Safety Report 9300884 (Version 1)
Quarter: 2013Q2

REPORT INFORMATION
  Report Type: Spontaneous
  Country: US (occurrence: US)
  Receive Date: 20130521
  Receipt Date: 20130521
  Transmission Date: 20140414
  Serious: Yes (Other)
  Sender: FDA-Public Use
  Company Number: US-ROCHE-1224107

PATIENT
  Sex: Female

DRUGS (4)
  1. PEGASYS [Suspect]
     Indication: CHRONIC HEPATITIS C
     Route: 058
     Dates: start: 20130301
  2. RIBAPAK [Suspect]
     Indication: CHRONIC HEPATITIS C
     Route: 048
     Dates: start: 20130301
  3. RIBAPAK [Suspect]
     Route: 048
  4. TELAPREVIR [Suspect]
     Indication: CHRONIC HEPATITIS C
     Route: 065
     Dates: start: 20130301

REACTIONS (6)
  - Anaemia [Unknown]
  - Fatigue [Unknown]
  - Oral mucosal blistering [Unknown]
  - Fall [Unknown]
  - Facial bones fracture [Unknown]
  - Weight decreased [Unknown]
